FAERS Safety Report 6201705-2 (Version None)
Quarter: 2009Q2

REPORT INFORMATION
  Report Type: 
  Country: None (occurrence: None)
  Receive Date: 20090526
  Receipt Date: 20090514
  Transmission Date: 20091009
  Serious: Yes (Other)
  Sender: FDA-Public Use
  Company Number: FR-BAYER-200920428GPV

PATIENT
  Age: 37 Year
  Sex: Female

DRUGS (2)
  1. YASMIN [Suspect]
     Indication: CONTRACEPTION
     Route: 048
     Dates: start: 20090131
  2. PROCUTA [Suspect]
     Indication: ACNE
     Route: 048
     Dates: start: 20080131

REACTIONS (2)
  - ABORTION INDUCED [None]
  - PREGNANCY ON ORAL CONTRACEPTIVE [None]
